FAERS Safety Report 4485199-3 (Version None)
Quarter: 2004Q4

REPORT INFORMATION
  Report Type: 
  Country: None (occurrence: None)
  Receive Date: 20041026
  Receipt Date: 20040422
  Transmission Date: 20050328
  Serious: No
  Sender: FDA-Public Use
  Company Number: US-BRISTOL-MYERS SQUIBB COMPANY-12568382

PATIENT
  Age: 63 Year
  Sex: Female
  Weight: 61 kg

DRUGS (15)
  1. GLUCOPHAGE XR [Suspect]
     Indication: DIABETES MELLITUS NON-INSULIN-DEPENDENT
     Route: 048
     Dates: start: 20040420
  2. SYNTHROID [Concomitant]
  3. INDERAL [Concomitant]
  4. GLUCOTROL XL [Concomitant]
  5. COZAAR [Concomitant]
  6. DYAZIDE [Concomitant]
  7. ACCUPRIL [Concomitant]
  8. PRAVACHOL [Concomitant]
  9. PREMARIN [Concomitant]
  10. PROVERA [Concomitant]
  11. OS-CAL [Concomitant]
  12. CHONDROITIN + GLUCOSAMINE [Concomitant]
  13. VITAMIN E [Concomitant]
  14. VITAMIN C [Concomitant]
  15. THERAGRAN-M ADVANCED [Concomitant]

REACTIONS (2)
  - NAUSEA [None]
  - STOMACH DISCOMFORT [None]
